FAERS Safety Report 18119414 (Version 1)
Quarter: 2020Q3

REPORT INFORMATION
  Report Type: Report from Study
  Country: US (occurrence: US)
  Receive Date: 20200806
  Receipt Date: 20200806
  Transmission Date: 20201103
  Serious: Yes (Hospitalization, Other)
  Sender: FDA-Public Use
  Company Number: US-PFIZER INC-2020293219

PATIENT
  Age: 78 Year
  Sex: Male

DRUGS (28)
  1. OFEV [Suspect]
     Active Substance: NINTEDANIB
     Dosage: 150 MG, 2X/DAY
     Dates: start: 20200205
  2. CALCIUM CITRATE [Concomitant]
     Active Substance: CALCIUM CITRATE
     Dosage: UNK
  3. IMODIUM [Suspect]
     Active Substance: LOPERAMIDE HYDROCHLORIDE
     Indication: DIARRHOEA
     Dosage: 1 DF, 2X/DAY (1 DOAGE FORM, 2 IN 1 D (DAY)
     Dates: start: 201903
  4. OFEV [Suspect]
     Active Substance: NINTEDANIB
     Dosage: UNK
  5. OFEV [Suspect]
     Active Substance: NINTEDANIB
     Dosage: UNK
  6. TAMSULOSIN [Concomitant]
     Active Substance: TAMSULOSIN
     Indication: PROSTATOMEGALY
     Dosage: 0.4 MG, 1X/DAY
  7. VIT D [Concomitant]
     Active Substance: VITAMIN D NOS
     Dosage: UNK
  8. OFEV [Suspect]
     Active Substance: NINTEDANIB
     Indication: IDIOPATHIC PULMONARY FIBROSIS
     Dosage: 300 MG, 1X/DAY
     Route: 048
     Dates: start: 20181212, end: 20190507
  9. CALCIUM [Concomitant]
     Active Substance: CALCIUM
     Dosage: UNK
  10. CALCIUM CITRATE/VITAMIN D [Concomitant]
     Active Substance: CALCIUM CITRATE\VITAMIN D
     Indication: OSTEOPENIA
     Dosage: 500 MG, 2X/DAY
  11. IPRATROPIUM [Concomitant]
     Active Substance: IPRATROPIUM
     Indication: RHINITIS
     Dosage: 2 DF, 2X/DAY ((1 SPRAY EACH NOSTRIL BID (2 IN 1 D))
     Route: 045
  12. GABAPENTIN. [Concomitant]
     Active Substance: GABAPENTIN
     Dosage: UNK
  13. OFEV [Suspect]
     Active Substance: NINTEDANIB
     Dosage: 300 MG, 1X/DAY
     Route: 048
     Dates: start: 20190510
  14. OFEV [Suspect]
     Active Substance: NINTEDANIB
     Dosage: UNK
  15. OFEV [Suspect]
     Active Substance: NINTEDANIB
     Dosage: UNK
  16. ATROVENT HFA [Concomitant]
     Active Substance: IPRATROPIUM BROMIDE
     Dosage: UNK
  17. FLUTICASONE. [Concomitant]
     Active Substance: FLUTICASONE
     Indication: RHINITIS
     Dosage: 2 DF, 2X/DAY (1 SPRAY EACH NOSTRIL BID (2 IN 1 D))
     Route: 045
  18. CLARITIN?D NOS [Concomitant]
     Active Substance: LORATADINE\PSEUDOEPHEDRINE SULFATE
     Indication: RHINITIS
     Dosage: 1 DF, 1X/DAY
  19. OFEV [Suspect]
     Active Substance: NINTEDANIB
     Dosage: UNK
  20. OFEV [Suspect]
     Active Substance: NINTEDANIB
     Dosage: UNK
  21. COMBIGAN [Concomitant]
     Active Substance: BRIMONIDINE TARTRATE\TIMOLOL MALEATE
     Dosage: UNK
  22. MUCINEX DM [Concomitant]
     Active Substance: DEXTROMETHORPHAN HYDROBROMIDE\GUAIFENESIN
     Dosage: UNK
  23. LOMOTIL [Suspect]
     Active Substance: ATROPINE SULFATE\DIPHENOXYLATE HYDROCHLORIDE
     Indication: DIARRHOEA
     Dosage: 1 DF, 2X/DAY (1 DOSAGE FORMS,BID)
     Dates: start: 201804, end: 201903
  24. OFEV [Suspect]
     Active Substance: NINTEDANIB
     Dosage: UNK
  25. ASPIRIN [ACETYLSALICYLIC ACID] [Concomitant]
     Active Substance: ASPIRIN
     Dosage: UNK
  26. CHOLESTYRAMINE. [Concomitant]
     Active Substance: CHOLESTYRAMINE
     Indication: DIARRHOEA
     Dosage: UNK
     Dates: start: 201804, end: 201903
  27. SERTRALINE [Concomitant]
     Active Substance: SERTRALINE HYDROCHLORIDE
     Dosage: UNK
  28. OMEPRAZOLE. [Concomitant]
     Active Substance: OMEPRAZOLE
     Indication: GASTROOESOPHAGEAL REFLUX DISEASE
     Dosage: 20 MG, 1X/DAY

REACTIONS (20)
  - Osteopenia [Unknown]
  - Flatulence [Not Recovered/Not Resolved]
  - Defaecation urgency [Recovered/Resolved]
  - Constipation [Not Recovered/Not Resolved]
  - Sinusitis [Recovered/Resolved]
  - Rhinorrhoea [Not Recovered/Not Resolved]
  - Frequent bowel movements [Not Recovered/Not Resolved]
  - Hypersensitivity [Unknown]
  - Diarrhoea [Not Recovered/Not Resolved]
  - Anal incontinence [Recovered/Resolved]
  - Disease recurrence [Not Recovered/Not Resolved]
  - Faeces soft [Recovered/Resolved]
  - Seasonal allergy [Recovering/Resolving]
  - Insomnia [Not Recovered/Not Resolved]
  - Cough [Recovering/Resolving]
  - Small intestinal obstruction [Not Recovered/Not Resolved]
  - Back pain [Unknown]
  - Disease recurrence [Unknown]
  - Weight decreased [Not Recovered/Not Resolved]
  - Nasal congestion [Not Recovered/Not Resolved]

NARRATIVE: CASE EVENT DATE: 201902
